FAERS Safety Report 24742527 (Version 2)
Quarter: 2025Q1

REPORT INFORMATION
  Report Type: Spontaneous
  Country: US (occurrence: US)
  Receive Date: 20241217
  Receipt Date: 20250306
  Transmission Date: 20250408
  Serious: No
  Sender: ELI LILLY AND COMPANY
  Company Number: US-ELI_LILLY_AND_COMPANY-US202409010919

PATIENT
  Age: 35 Year
  Sex: Male

DRUGS (30)
  1. HUMALOG [Suspect]
     Active Substance: INSULIN LISPRO
     Indication: Type 1 diabetes mellitus
     Route: 058
  2. HUMALOG [Suspect]
     Active Substance: INSULIN LISPRO
     Indication: Type 1 diabetes mellitus
     Route: 058
  3. HUMALOG [Suspect]
     Active Substance: INSULIN LISPRO
     Indication: Type 1 diabetes mellitus
     Route: 058
  4. HUMALOG [Suspect]
     Active Substance: INSULIN LISPRO
     Indication: Type 1 diabetes mellitus
     Route: 058
  5. HUMALOG [Suspect]
     Active Substance: INSULIN LISPRO
     Indication: Type 1 diabetes mellitus
     Route: 058
  6. HUMALOG [Suspect]
     Active Substance: INSULIN LISPRO
     Indication: Type 1 diabetes mellitus
     Route: 058
  7. HUMALOG [Suspect]
     Active Substance: INSULIN LISPRO
     Indication: Type 1 diabetes mellitus
     Route: 058
  8. HUMALOG [Suspect]
     Active Substance: INSULIN LISPRO
     Route: 065
  9. HUMALOG [Suspect]
     Active Substance: INSULIN LISPRO
     Route: 065
  10. HUMALOG [Suspect]
     Active Substance: INSULIN LISPRO
     Route: 065
  11. HUMALOG [Suspect]
     Active Substance: INSULIN LISPRO
     Route: 065
  12. HUMALOG [Suspect]
     Active Substance: INSULIN LISPRO
     Route: 065
  13. HUMALOG [Suspect]
     Active Substance: INSULIN LISPRO
     Route: 065
  14. HUMALOG [Suspect]
     Active Substance: INSULIN LISPRO
     Route: 058
  15. HUMALOG [Suspect]
     Active Substance: INSULIN LISPRO
     Route: 058
  16. HUMALOG [Suspect]
     Active Substance: INSULIN LISPRO
     Route: 058
  17. HUMALOG [Suspect]
     Active Substance: INSULIN LISPRO
     Route: 058
  18. HUMALOG [Suspect]
     Active Substance: INSULIN LISPRO
     Route: 058
  19. HUMALOG [Suspect]
     Active Substance: INSULIN LISPRO
     Route: 058
  20. HUMALOG [Suspect]
     Active Substance: INSULIN LISPRO
     Route: 058
  21. HUMALOG [Suspect]
     Active Substance: INSULIN LISPRO
     Route: 058
  22. HUMALOG [Suspect]
     Active Substance: INSULIN LISPRO
     Route: 058
  23. HUMALOG [Suspect]
     Active Substance: INSULIN LISPRO
     Route: 058
  24. HUMALOG [Suspect]
     Active Substance: INSULIN LISPRO
     Route: 058
  25. HUMALOG [Suspect]
     Active Substance: INSULIN LISPRO
     Route: 058
  26. HUMALOG [Suspect]
     Active Substance: INSULIN LISPRO
     Route: 058
  27. HUMALOG [Suspect]
     Active Substance: INSULIN LISPRO
     Route: 058
  28. HUMALOG [Suspect]
     Active Substance: INSULIN LISPRO
     Route: 058
  29. HUMALOG [Suspect]
     Active Substance: INSULIN LISPRO
     Route: 058
  30. LANTUS [Concomitant]
     Active Substance: INSULIN GLARGINE
     Indication: Type 1 diabetes mellitus

REACTIONS (2)
  - Wrong technique in product usage process [Unknown]
  - Blood glucose increased [Not Recovered/Not Resolved]
